FAERS Safety Report 6342703-8 (Version None)
Quarter: 2009Q3

REPORT INFORMATION
  Report Type: 
  Country: None (occurrence: None)
  Receive Date: 20090908
  Receipt Date: 20090828
  Transmission Date: 20100115
  Serious: Yes (Hospitalization)
  Sender: FDA-Public Use
  Company Number: US-EISAI INC.-E7272-00032-CLI-US

PATIENT
  Sex: Male
  Weight: 103 kg

DRUGS (3)
  1. ONTAK [Suspect]
     Indication: PERIPHERAL T-CELL LYMPHOMA UNSPECIFIED
     Route: 041
     Dates: start: 20090203
  2. ETOPOSIDE [Concomitant]
     Dates: start: 20090205
  3. CYCLOPHOSPHAMIDE [Concomitant]
     Dates: start: 20090807

REACTIONS (1)
  - PNEUMONITIS [None]
